FAERS Safety Report 10164565 (Version 1)
Quarter: 2014Q2

REPORT INFORMATION
  Report Type: Spontaneous
  Country: US (occurrence: US)
  Receive Date: 20140510
  Receipt Date: 20140510
  Transmission Date: 20141212
  Serious: No
  Sender: FDA-Public Use
  Company Number: US-BRISTOL-MYERS SQUIBB COMPANY-19548395

PATIENT
  Age: 72 Year
  Sex: Female
  Weight: 79.36 kg

DRUGS (5)
  1. BYDUREON [Suspect]
     Indication: TYPE 2 DIABETES MELLITUS
     Route: 058
     Dates: start: 20130907, end: 20130928
  2. JANUVIA [Concomitant]
  3. GLYBURIDE [Concomitant]
  4. METFORMIN [Concomitant]
  5. CRESTOR [Concomitant]

REACTIONS (15)
  - Nausea [Recovered/Resolved]
  - Vomiting [Unknown]
  - Headache [Unknown]
  - Fatigue [Unknown]
  - Diarrhoea [Unknown]
  - Chest pain [Unknown]
  - Flatulence [Unknown]
  - Dyspnoea [Unknown]
  - Dry mouth [Unknown]
  - Eructation [Unknown]
  - Wheezing [Unknown]
  - Throat irritation [Unknown]
  - Decreased appetite [Unknown]
  - Gastric disorder [Unknown]
  - Sleep disorder [Unknown]
